FAERS Safety Report 9949883 (Version 1)
Quarter: 2014Q1

REPORT INFORMATION
  Report Type: Report from Study
  Country: US (occurrence: US)
  Receive Date: 20140304
  Receipt Date: 20140304
  Transmission Date: 20141002
  Serious: No
  Sender: FDA-Public Use
  Company Number: US-ABBVIE-13P-163-1069315-00

PATIENT
  Age: 37 Year
  Sex: Female

DRUGS (4)
  1. HUMIRA [Suspect]
     Indication: CROHN^S DISEASE
     Dates: start: 20120817, end: 201303
  2. HUMIRA [Suspect]
  3. CYMBALTA [Concomitant]
     Indication: DEPRESSION
  4. FOLIC ACID [Concomitant]
     Indication: CROHN^S DISEASE

REACTIONS (1)
  - Influenza [Recovered/Resolved]
